FAERS Safety Report 8516428-4 (Version None)
Quarter: 2012Q3

REPORT INFORMATION
  Report Type: 
  Country: None (occurrence: None)
  Receive Date: 20120718
  Receipt Date: 20120709
  Transmission Date: 20120928
  Serious: Yes (Other)
  Sender: FDA-Public Use
  Company Number: US-BRISTOL-MYERS SQUIBB COMPANY-16753758

PATIENT
  Age: 49 Year
  Sex: Female
  Weight: 76 kg

DRUGS (1)
  1. ABILIFY [Suspect]
     Indication: BIPOLAR DISORDER
     Dosage: SOTP DATE:15MAY12 RESTARTED:JUL12

REACTIONS (3)
  - BIPOLAR I DISORDER [None]
  - TREATMENT NONCOMPLIANCE [None]
  - BLOOD URINE PRESENT [None]
